FAERS Safety Report 6499848-1 (Version None)
Quarter: 2009Q4

REPORT INFORMATION
  Report Type: 
  Country: None (occurrence: None)
  Receive Date: 20091214
  Receipt Date: 20091214
  Transmission Date: 20100525
  Serious: Yes (Other)
  Sender: FDA-Public Use
  Company Number: None

PATIENT
  Age: 26 Year
  Sex: Female

DRUGS (1)
  1. CEFTRIAXON [Suspect]
     Indication: PELVIC INFLAMMATORY DISEASE
     Dosage: 125 MG ONCE IM
     Route: 030
     Dates: start: 20091104, end: 20091104

REACTIONS (4)
  - DRUG HYPERSENSITIVITY [None]
  - HYPOAESTHESIA [None]
  - INJECTION SITE PAIN [None]
  - PYREXIA [None]
